FAERS Safety Report 6920865-9 (Version None)
Quarter: 2010Q3

REPORT INFORMATION
  Report Type: 
  Country: None (occurrence: None)
  Receive Date: 20100804
  Receipt Date: 20090602
  Transmission Date: 20110219
  Serious: No
  Sender: FDA-Public Use
  Company Number: 2009-0992

PATIENT
  Age: 59 Year
  Sex: Male
  Weight: 102 kg

DRUGS (13)
  1. SOMATULINE DEPOT [Suspect]
     Indication: ACROMEGALY
     Dosage: (120 MG, 1 IN 28 D), SUBCUTANEOUS
     Route: 058
     Dates: start: 20080715
  2. CELEBREX [Concomitant]
  3. HYDROCHLOROTHIAZIDE [Concomitant]
  4. TRAMADOL HCL [Concomitant]
  5. RAMAPRIL (ACE INHABITOR NOS) [Concomitant]
  6. AVADART (DUTASTERIDE) [Concomitant]
  7. EFFEXOR XR [Concomitant]
  8. RITALIN [Concomitant]
  9. CONCERTA [Concomitant]
  10. NORTYPTYLINE (NORTIPTYLINE) [Concomitant]
  11. ACITHEX (ALL OTHER THERAPEUTIC PRODUCTS) [Concomitant]
  12. REGLAN [Concomitant]
  13. BOXOZSINMEST LATE (ALL OTHER THERAPEUTIC PRODUCTS) [Concomitant]

REACTIONS (5)
  - FATIGUE [None]
  - HEADACHE [None]
  - INJECTION SITE EXTRAVASATION [None]
  - INJECTION SITE IRRITATION [None]
  - INJECTION SITE PRURITUS [None]
